FAERS Safety Report 22290805 (Version 1)
Quarter: 2023Q2

REPORT INFORMATION
  Report Type: Spontaneous
  Country: ES (occurrence: ES)
  Receive Date: 20230506
  Receipt Date: 20230506
  Transmission Date: 20230722
  Serious: Yes (Hospitalization)
  Sender: FDA-Public Use
  Company Number: ES-AEMPS-1359431

PATIENT
  Age: 69 Year
  Sex: Male

DRUGS (19)
  1. AMOXICILLIN\CLAVULANIC ACID [Suspect]
     Active Substance: AMOXICILLIN\CLAVULANIC ACID
     Indication: Chronic obstructive pulmonary disease
     Dosage: 1.0 VIAL WITH 8 HOURS
     Route: 042
     Dates: start: 20221202, end: 20221202
  2. ALDACTONE [Concomitant]
     Active Substance: SPIRONOLACTONE
     Indication: Cardiac failure
     Dosage: 50.0 MG DE
     Route: 048
     Dates: start: 20210205
  3. ENTRESTO [Concomitant]
     Active Substance: SACUBITRIL\VALSARTAN
     Indication: Cardiac failure
     Dosage: 1.0 COMP C/12 H
     Route: 048
     Dates: start: 20210226
  4. BISOPROLOL KERN [Concomitant]
     Indication: Cardiac failure
     Dosage: 5.0 MG DECE
     Route: 048
     Dates: start: 20210226
  5. SYNJARDY [Concomitant]
     Active Substance: EMPAGLIFLOZIN\METFORMIN HYDROCHLORIDE
     Indication: Diabetes mellitus
     Dosage: 1.0 COMP C/12 H
     Route: 048
     Dates: start: 20210226
  6. Tranalex [Concomitant]
     Indication: Product used for unknown indication
     Dosage: 50.0 MG DE
     Route: 048
     Dates: start: 20200204
  7. ALLOPURINOL [Concomitant]
     Active Substance: ALLOPURINOL
     Indication: Hyperuricaemia
     Dosage: 100.0 MG DE
     Route: 048
     Dates: start: 20210227
  8. PREMAX [Concomitant]
     Indication: Anxiety
     Dosage: 75.0 MG C/12 H
     Route: 048
     Dates: start: 20210227
  9. FUROSEMIDE [Concomitant]
     Active Substance: FUROSEMIDE
     Indication: Cellulitis
     Dosage: 40.0 MG C/12 H
     Route: 048
     Dates: start: 20210112
  10. VENTOLIN [Concomitant]
     Active Substance: ALBUTEROL SULFATE
     Indication: Obstructive airways disorder
     Dosage: 100.0 MCG C/8 HORAS
     Route: 065
     Dates: start: 20151202
  11. SPIRIVA [Concomitant]
     Active Substance: TIOTROPIUM BROMIDE MONOHYDRATE
     Indication: Bronchitis chronic
     Dosage: 18.0 MCG C/24 H
     Route: 065
     Dates: start: 20161213
  12. ATORVASTATINA TECNIGEN [Concomitant]
     Indication: Obesity
     Dosage: 40.0 MG CE
     Route: 048
     Dates: start: 20220124
  13. SYMBICORT [Concomitant]
     Active Substance: BUDESONIDE\FORMOTEROL FUMARATE DIHYDRATE
     Indication: Bronchitis chronic
     Dosage: 2.0 PUFF C/12 H
     Route: 065
     Dates: start: 20210317
  14. VENLAFAXINE HYDROCHLORIDE [Concomitant]
     Active Substance: VENLAFAXINE HYDROCHLORIDE
     Indication: Product used for unknown indication
     Dosage: 75.0 MG DE
     Route: 048
     Dates: start: 20200111
  15. OMEPRAZOL TECNIGEN [Concomitant]
     Indication: Gastritis
     Dosage: 20.0 MG A-DE
     Route: 048
     Dates: start: 20210227
  16. Deprax [Concomitant]
     Indication: Product used for unknown indication
     Dosage: 100.0 MG C/24 H NOC
     Route: 048
     Dates: start: 20200110
  17. XARELTO [Concomitant]
     Active Substance: RIVAROXABAN
     Indication: Atrial flutter
     Dosage: 20.0 MG DE
     Route: 048
     Dates: start: 20210227
  18. ATORVASTATIN CALCIUM\EZETIMIBE [Concomitant]
     Active Substance: ATORVASTATIN CALCIUM\EZETIMIBE
     Indication: Hypercholesterolaemia
     Dosage: 1.0 COMP C/24 H
     Route: 048
     Dates: start: 20200624
  19. PARACETAMOL KERN PHARMA [Concomitant]
     Indication: Arthralgia
     Dosage: 1.0 G DECOCE
     Route: 048
     Dates: start: 20200121

REACTIONS (3)
  - Bronchospasm [Recovered/Resolved]
  - Tongue oedema [Recovered/Resolved]
  - Lip oedema [Recovered/Resolved]

NARRATIVE: CASE EVENT DATE: 20221202
